FAERS Safety Report 9190311 (Version 1)
Quarter: 2013Q1

REPORT INFORMATION
  Report Type: Spontaneous
  Country: GB (occurrence: None)
  Receive Date: 20130322
  Receipt Date: 20130322
  Transmission Date: 20140127
  Serious: Yes (Hospitalization)
  Sender: FDA-Public Use
  Company Number: VAL_02214_2013

PATIENT
  Sex: Female

DRUGS (4)
  1. ROCALTROL [Suspect]
     Indication: PRODUCT USED FOR UNKNOWN INDICATION
  2. AMLODIPINE [Concomitant]
  3. CREON (UNKNOWN) [Concomitant]
  4. LANSOPRAZOLE (UNKNOWN) [Concomitant]

REACTIONS (1)
  - Hypoglycaemic coma [None]
